FAERS Safety Report 9068238 (Version 1)
Quarter: 2013Q1

REPORT INFORMATION
  Report Type: Spontaneous
  Country: US (occurrence: US)
  Receive Date: 20130206
  Receipt Date: 20130206
  Transmission Date: 20140127
  Serious: No
  Sender: FDA-Public Use
  Company Number: US-ASTRAZENECA-2013SE05403

PATIENT
  Age: 40 Year
  Sex: Female
  Weight: 101.2 kg

DRUGS (5)
  1. SEROQUEL XR [Suspect]
     Indication: PREMENSTRUAL SYNDROME
     Route: 048
     Dates: start: 20121221
  2. FISH OIL [Concomitant]
     Indication: SUPPLEMENTATION THERAPY
     Route: 048
  3. PROZAC [Concomitant]
     Indication: PREMENSTRUAL SYNDROME
     Dosage: 20 MG DAILY FOR A 2 WEEKS PERIOD DURING EACH MONTH
     Route: 048
  4. SYNTHROID [Concomitant]
     Indication: THYROID DISORDER
     Route: 048
  5. METFORMIN [Concomitant]
     Indication: GLUCOSE TOLERANCE IMPAIRED
     Route: 048

REACTIONS (6)
  - Sinusitis [Recovering/Resolving]
  - Post-traumatic stress disorder [Unknown]
  - Somnolence [Recovering/Resolving]
  - Somnolence [Recovering/Resolving]
  - Off label use [Unknown]
  - Therapeutic response unexpected [Unknown]
